FAERS Safety Report 25588266 (Version 1)
Quarter: 2025Q3

REPORT INFORMATION
  Report Type: Spontaneous
  Country: JP (occurrence: JP)
  Receive Date: 20250722
  Receipt Date: 20250722
  Transmission Date: 20251021
  Serious: Yes (Other)
  Sender: JOHNSON AND JOHNSON
  Company Number: JP-JNJFOC-20250720569

PATIENT
  Age: 5 Decade
  Sex: Female
  Weight: 44 kg

DRUGS (3)
  1. OPSUMIT [Suspect]
     Active Substance: MACITENTAN
     Indication: Pulmonary arterial hypertension
     Route: 048
  2. UPTRAVI [Suspect]
     Active Substance: SELEXIPAG
     Indication: Product used for unknown indication
     Route: 048
  3. TADALAFIL [Suspect]
     Active Substance: TADALAFIL
     Indication: Pulmonary arterial hypertension
     Route: 048

REACTIONS (7)
  - Hypokalaemia [Unknown]
  - Anaemia [Unknown]
  - Weight decreased [Unknown]
  - Fatigue [Unknown]
  - Right ventricular enlargement [Unknown]
  - Right ventricular systolic pressure decreased [Unknown]
  - Decreased activity [Unknown]
